FAERS Safety Report 6461926-0 (Version None)
Quarter: 2009Q4

REPORT INFORMATION
  Report Type: 
  Country: None (occurrence: None)
  Receive Date: 20091130
  Receipt Date: 20091118
  Transmission Date: 20100525
  Serious: Yes (Hospitalization)
  Sender: FDA-Public Use
  Company Number: US-ASTRAZENECA-2009SE27288

PATIENT
  Age: 50 Year
  Sex: Female
  Weight: 77.1 kg

DRUGS (12)
  1. TOPROL-XL [Suspect]
     Dosage: 50-200 MG
     Route: 048
     Dates: start: 20070101
  2. TOPROL-XL [Suspect]
     Route: 048
  3. NORVASC [Concomitant]
  4. CYMBALTA [Concomitant]
  5. HYDROCHLOROTHIAZIDE [Concomitant]
  6. NEXIUM [Concomitant]
  7. PREMARIN [Concomitant]
  8. NEURONTIN [Concomitant]
  9. VITAMINS [Concomitant]
  10. IBUPROFEN [Concomitant]
  11. VERSED [Concomitant]
  12. ANTIBIOTICS [Concomitant]

REACTIONS (3)
  - CARDIAC DISORDER [None]
  - DYSPNOEA [None]
  - VISION BLURRED [None]
